FAERS Safety Report 8419346 (Version 3)
Quarter: 2013Q1

REPORT INFORMATION
  Report Type: Report from Study
  Country: DE (occurrence: DE)
  Receive Date: 20120221
  Receipt Date: 20130328
  Transmission Date: 20140127
  Serious: Yes (Hospitalization, Disabling, Other)
  Sender: FDA-Public Use
  Company Number: PHHO2012DE002433

PATIENT
  Sex: 0

DRUGS (9)
  1. ICL670A [Suspect]
     Indication: IRON OVERLOAD
     Dosage: 500 MG, QD
     Route: 048
     Dates: start: 20110817, end: 20110927
  2. ICL670A [Suspect]
     Dosage: 1000 MG, QD
     Dates: start: 20110928, end: 20111107
  3. METFORMIN [Suspect]
     Indication: DIABETES MELLITUS
     Dosage: 1000 MG, BID
     Dates: start: 20110706, end: 20111106
  4. BISOPROLOL [Concomitant]
     Dosage: 5 MG, QD
     Dates: start: 20110815
  5. L-THYROXIN [Concomitant]
     Dosage: UNK
     Dates: start: 20110415
  6. CITALOPRAM [Concomitant]
     Dosage: UNK
     Dates: start: 20110415
  7. RAMIPRIL [Concomitant]
     Indication: HYPERTENSION
     Dosage: 5 MG, QID
     Route: 048
     Dates: start: 20110817
  8. INSULIN NOVO RAPITARD [Concomitant]
     Dosage: UNK
     Route: 058
     Dates: start: 20110803, end: 20111106
  9. PANTO [Concomitant]
     Dosage: 20/40 MG AM
     Dates: start: 20111108

REACTIONS (5)
  - Acidosis [Recovering/Resolving]
  - Hypoglycaemia [Recovering/Resolving]
  - Renal failure [Recovering/Resolving]
  - Hepatic encephalopathy [Unknown]
  - Upper respiratory tract infection [Unknown]
